FAERS Safety Report 9608211 (Version 2)
Quarter: 2013Q4

REPORT INFORMATION
  Report Type: Spontaneous
  Country: US (occurrence: US)
  Receive Date: 20131009
  Receipt Date: 20131009
  Transmission Date: 20140711
  Serious: No
  Sender: FDA-Public Use
  Company Number: US-PURDUE-USA-2012-0092286

PATIENT
  Age: 52 Year
  Sex: Male

DRUGS (3)
  1. BUTRANS [Suspect]
     Indication: PAIN
     Dosage: 20 MCG/HR, UNK
     Route: 062
     Dates: start: 20120613, end: 20120711
  2. BUTRANS [Suspect]
     Dosage: 5 MCG, UNK
     Route: 062
  3. BUTRANS [Suspect]
     Dosage: 10 MCG, UNK
     Route: 062
     Dates: start: 20120711

REACTIONS (4)
  - Drug effect increased [Recovered/Resolved]
  - Fatigue [Recovered/Resolved]
  - Drug dispensing error [Unknown]
  - Inadequate analgesia [Recovered/Resolved]
